FAERS Safety Report 14291675 (Version 1)
Quarter: 2017Q4

REPORT INFORMATION
  Report Type: Spontaneous
  Country: GB (occurrence: GB)
  Receive Date: 20171215
  Receipt Date: 20171215
  Transmission Date: 20180321
  Serious: Yes (Death, Hospitalization)
  Sender: FDA-Public Use
  Company Number: GB-TEVA-2017-GB-833213

PATIENT
  Age: 71 Year
  Sex: Female

DRUGS (11)
  1. VENTOLIN [Concomitant]
     Active Substance: ALBUTEROL SULFATE
     Dosage: 1-2 DOSES, FOUR TIMES A DAY
     Route: 055
     Dates: start: 20170718
  2. ROSUVASTATIN. [Concomitant]
     Active Substance: ROSUVASTATIN
     Dosage: NIGHTTIME
     Route: 048
     Dates: start: 20170719
  3. PARACETAMOL [Concomitant]
     Active Substance: ACETAMINOPHEN
     Route: 048
     Dates: start: 20170717
  4. FORTISIP [Concomitant]
     Active Substance: CARBOHYDRATES\FATTY ACIDS\MINERALS\PROTEIN\VITAMINS
     Route: 048
     Dates: start: 20170719
  5. CLOPIDOGREL [Concomitant]
     Active Substance: CLOPIDOGREL BISULFATE
     Route: 048
     Dates: start: 20170719
  6. QVAR [Concomitant]
     Active Substance: BECLOMETHASONE DIPROPIONATE
     Route: 055
     Dates: start: 20170718
  7. PACLITAXEL. [Suspect]
     Active Substance: PACLITAXEL
     Indication: BREAST CANCER METASTATIC
     Dates: start: 20170720, end: 20170720
  8. CODEINE [Concomitant]
     Active Substance: CODEINE
     Indication: PAIN
     Dosage: 30-60MG 4 TIMES A DAY
     Route: 048
     Dates: start: 20170717
  9. HALOPERIDOL. [Concomitant]
     Active Substance: HALOPERIDOL
     Dosage: NIGHTIME
     Route: 048
     Dates: start: 20170718
  10. PACLITAXEL. [Suspect]
     Active Substance: PACLITAXEL
     Dates: start: 20170713, end: 20170713
  11. MORPHINE SULFATE. [Concomitant]
     Active Substance: MORPHINE SULFATE
     Indication: PAIN
     Dosage: 10MG IN 5 ML. 2-5 - 5MG VARIABLE. UP TO 2 HOURLY
     Route: 048
     Dates: start: 20170718

REACTIONS (6)
  - Abdominal pain lower [Unknown]
  - Colitis [Not Recovered/Not Resolved]
  - Nausea [Unknown]
  - Abdominal sepsis [Not Recovered/Not Resolved]
  - Vomiting [Recovered/Resolved]
  - Neutropenic sepsis [Fatal]

NARRATIVE: CASE EVENT DATE: 201707
